FAERS Safety Report 13552397 (Version 1)
Quarter: 2017Q2

REPORT INFORMATION
  Report Type: Spontaneous
  Country: US (occurrence: US)
  Receive Date: 20170517
  Receipt Date: 20170517
  Transmission Date: 20170830
  Serious: Yes (Hospitalization, Other)
  Sender: FDA-Public Use
  Company Number: US-CIPLA LTD.-2017US08474

PATIENT

DRUGS (5)
  1. CISPLATIN. [Suspect]
     Active Substance: CISPLATIN
     Indication: OVARIAN CANCER STAGE III
     Dosage: 75 MG/M2, UNK, ON CYCLE DAY 2
     Route: 033
  2. PACLITAXEL. [Suspect]
     Active Substance: PACLITAXEL
     Indication: OVARIAN CANCER STAGE III
     Dosage: 135 MG/M2, 24 HOURS INFUSION ON CYCLE DAY 1
     Route: 042
  3. MANNITOL. [Suspect]
     Active Substance: MANNITOL
     Indication: OVARIAN CANCER STAGE III
     Dosage: 25 G, ON CYCLE DAY 2
     Route: 042
  4. VALACYCLOVIR [Suspect]
     Active Substance: VALACYCLOVIR HYDROCHLORIDE
     Indication: HERPES SIMPLEX
     Dosage: 1 G, TID, FOR ONE WEEK
     Route: 065
  5. PREDNISONE. [Suspect]
     Active Substance: PREDNISONE
     Indication: DEAFNESS NEUROSENSORY
     Dosage: 60 MG, TAPER OVER THE NEXT 18  DAYS
     Route: 065

REACTIONS (3)
  - Febrile neutropenia [Recovered/Resolved]
  - Acute kidney injury [Recovered/Resolved]
  - Deafness neurosensory [Recovering/Resolving]
